FAERS Safety Report 4311619-0 (Version None)
Quarter: 2004Q1

REPORT INFORMATION
  Report Type: 
  Country: None (occurrence: None)
  Receive Date: 20040304
  Receipt Date: 20040227
  Transmission Date: 20041129
  Serious: Yes (Hospitalization)
  Sender: FDA-Public Use
  Company Number: CH-ROCHE-360035

PATIENT
  Age: 74 Year
  Sex: Female

DRUGS (7)
  1. TOREM [Suspect]
     Indication: DRUG USE FOR UNKNOWN INDICATION
     Route: 048
  2. ALDACTONE [Suspect]
     Indication: DRUG USE FOR UNKNOWN INDICATION
     Route: 048
     Dates: start: 20031115, end: 20040130
  3. INDERAL [Concomitant]
     Route: 048
  4. OMEPRAZOLO [Concomitant]
     Dosage: TRADE NAME REPORTED AS OMED
     Route: 048
  5. FOLVITE [Concomitant]
     Route: 048
  6. NITRODERM [Concomitant]
     Route: 062
  7. INSULIN MIXTARD [Concomitant]
     Dosage: DAILY DOSE REPORTED AS 12-0-4-0-U
     Route: 058

REACTIONS (4)
  - CARDIOGENIC SHOCK [None]
  - DYSPNOEA [None]
  - HYPERKALAEMIA [None]
  - RENAL FAILURE [None]
